FAERS Safety Report 5773672-7 (Version None)
Quarter: 2008Q2

REPORT INFORMATION
  Report Type: 
  Country: None (occurrence: None)
  Receive Date: 20080616
  Receipt Date: 20080609
  Transmission Date: 20081010
  Serious: Yes (Other)
  Sender: FDA-Public Use
  Company Number: ZA-BRISTOL-MYERS SQUIBB COMPANY-14152987

PATIENT
  Age: 26 Year
  Sex: Female

DRUGS (4)
  1. EFAVIRENZ [Suspect]
     Indication: HIV INFECTION
     Route: 048
     Dates: start: 20060330, end: 20071113
  2. STAVUDINE [Suspect]
     Indication: HIV INFECTION
     Dates: start: 20060330, end: 20071113
  3. LAMIVUDINE [Suspect]
     Indication: HIV INFECTION
     Dates: start: 20060330, end: 20071113
  4. ISONIAZID + RIFAMPICIN [Concomitant]
     Indication: PULMONARY TUBERCULOSIS

REACTIONS (3)
  - CEPHALO-PELVIC DISPROPORTION [None]
  - NORMAL NEWBORN [None]
  - PREGNANCY [None]
